FAERS Safety Report 9974343 (Version 1)
Quarter: 2014Q1

REPORT INFORMATION
  Report Type: Report from Study
  Country: US (occurrence: US)
  Receive Date: 20140306
  Receipt Date: 20140306
  Transmission Date: 20141002
  Serious: No
  Sender: FDA-Public Use
  Company Number: US-ABBVIE-13P-163-1156190-00

PATIENT
  Age: 60 Year
  Sex: Male

DRUGS (12)
  1. HUMIRA [Suspect]
     Indication: CROHN^S DISEASE
     Dates: start: 20130907, end: 20130907
  2. HUMIRA [Suspect]
     Dates: start: 20130921, end: 20130921
  3. HUMIRA [Suspect]
  4. PENTASA [Concomitant]
     Indication: CROHN^S DISEASE
  5. CARVEDILOL [Concomitant]
     Indication: CARDIAC DISORDER
  6. LIPITOR [Concomitant]
     Indication: CARDIAC DISORDER
     Dosage: 10 MG DAILY
  7. SPIRONOLACTONE [Concomitant]
     Indication: CARDIAC DISORDER
     Dosage: 25 MG DAILY
  8. ASPIRIN [Concomitant]
     Indication: CARDIAC DISORDER
  9. FISH OIL [Concomitant]
     Indication: VITAMIN SUPPLEMENTATION
     Dosage: 1000 MG DAILY
  10. LISINOPRIL [Concomitant]
     Indication: CARDIAC DISORDER
     Dosage: 5 MG DAILY
  11. FEROSOL [Concomitant]
     Indication: MINERAL SUPPLEMENTATION
     Dosage: 300 MG DAILY
  12. TYLENOL [Concomitant]
     Indication: PAIN

REACTIONS (3)
  - Arthralgia [Not Recovered/Not Resolved]
  - Pain [Not Recovered/Not Resolved]
  - Influenza like illness [Not Recovered/Not Resolved]
